FAERS Safety Report 12062301 (Version 1)
Quarter: 2016Q1

REPORT INFORMATION
  Report Type: Spontaneous
  Country: US (occurrence: US)
  Receive Date: 20160210
  Receipt Date: 20160210
  Transmission Date: 20160526
  Serious: No
  Sender: FDA-Public Use
  Company Number: US-ALLERGAN-1507761US

PATIENT
  Age: 41 Year
  Sex: Female

DRUGS (4)
  1. ZEGERD [Concomitant]
     Indication: GASTROOESOPHAGEAL REFLUX DISEASE
     Dosage: UNK UNK, QD
     Route: 048
  2. BOTOX [Suspect]
     Active Substance: ONABOTULINUMTOXINA
     Indication: FACE LIFT
     Dosage: UNK, SINGLE
     Route: 030
     Dates: start: 20150325, end: 20150325
  3. LEXAPRO [Concomitant]
     Active Substance: ESCITALOPRAM OXALATE
     Indication: ANXIETY
     Dosage: 2.5 MG, QD
     Route: 048
  4. SCULPTRA [Concomitant]
     Active Substance: POLYLACTIDE, L-
     Indication: FACE LIFT
     Dosage: UNK
     Route: 030
     Dates: end: 201503

REACTIONS (3)
  - Facial paresis [Not Recovered/Not Resolved]
  - Off label use [Unknown]
  - Injection site swelling [Recovered/Resolved]

NARRATIVE: CASE EVENT DATE: 20150325
